FAERS Safety Report 11929036 (Version 1)
Quarter: 2016Q1

REPORT INFORMATION
  Report Type: Spontaneous
  Country: US (occurrence: US)
  Receive Date: 20160120
  Receipt Date: 20160120
  Transmission Date: 20160526
  Serious: Yes (Other)
  Sender: FDA-Public Use
  Company Number: US-TEVA-561543USA

PATIENT
  Sex: Male

DRUGS (1)
  1. METOPROLOL. [Suspect]
     Active Substance: METOPROLOL
     Dosage: 200 MILLIGRAM DAILY;

REACTIONS (2)
  - Hypertension [Recovered/Resolved]
  - Malaise [Recovered/Resolved]
